FAERS Safety Report 7464146-6 (Version None)
Quarter: 2011Q2

REPORT INFORMATION
  Report Type: 
  Country: None (occurrence: None)
  Receive Date: 20110506
  Receipt Date: 20110505
  Transmission Date: 20111010
  Serious: Yes (Other)
  Sender: FDA-Public Use
  Company Number: US-GILEAD-2011-0039133

PATIENT
  Age: 34 Year
  Sex: Female

DRUGS (4)
  1. KALETRA [Concomitant]
     Indication: HIV INFECTION
     Dates: start: 20101118, end: 20110210
  2. RITONAVIR [Concomitant]
     Indication: HIV INFECTION
     Route: 048
     Dates: start: 20071001, end: 20101118
  3. ATAZANAVIR [Concomitant]
     Indication: HIV INFECTION
     Route: 048
     Dates: start: 20071001, end: 20101118
  4. TRUVADA [Suspect]
     Indication: HIV INFECTION
     Route: 048
     Dates: start: 20071001

REACTIONS (1)
  - STILLBIRTH [None]
